FAERS Safety Report 14457550 (Version 4)
Quarter: 2019Q4

REPORT INFORMATION
  Report Type: Spontaneous
  Country: US (occurrence: US)
  Receive Date: 20180130
  Receipt Date: 20191202
  Transmission Date: 20200122
  Serious: No
  Sender: FDA-Public Use
  Company Number: US-PFIZER INC-2018040384

PATIENT
  Age: 54 Year
  Sex: Female
  Weight: 76 kg

DRUGS (9)
  1. XELJANZ XR [Suspect]
     Active Substance: TOFACITINIB CITRATE
     Indication: RHEUMATOID ARTHRITIS
     Dosage: 11 MG, 1X/DAY
     Route: 048
  2. CO Q 10 [UBIDECARENONE] [Concomitant]
     Dosage: UNK
  3. COZAAR [Concomitant]
     Active Substance: LOSARTAN POTASSIUM
     Indication: BLOOD CHOLESTEROL ABNORMAL
     Dosage: 50 MG, 1X/DAY
     Route: 048
  4. XELJANZ XR [Suspect]
     Active Substance: TOFACITINIB CITRATE
     Dosage: 11 MG, DAILY
     Route: 048
     Dates: start: 201907
  5. SIMVASTATIN. [Concomitant]
     Active Substance: SIMVASTATIN
     Dosage: UNK
  6. HUMIRA [Concomitant]
     Active Substance: ADALIMUMAB
     Dosage: UNK
  7. LOSARTAN. [Concomitant]
     Active Substance: LOSARTAN
     Indication: BLOOD PRESSURE ABNORMAL
     Dosage: UNK, 1X/DAY (A LOW DOSE)
     Route: 048
  8. DEXILANT [Concomitant]
     Active Substance: DEXLANSOPRAZOLE
     Indication: BARRETT^S OESOPHAGUS
     Dosage: 60 MG, 1X/DAY
     Route: 048
  9. PREDNISONE. [Concomitant]
     Active Substance: PREDNISONE
     Dosage: UNK

REACTIONS (4)
  - Muscle strain [Recovering/Resolving]
  - Infection [Unknown]
  - Product dose omission [Unknown]
  - Malaise [Unknown]

NARRATIVE: CASE EVENT DATE: 20191030
